FAERS Safety Report 9140701 (Version 2)
Quarter: 2013Q2

REPORT INFORMATION
  Report Type: Report from Study
  Country: DE (occurrence: DE)
  Receive Date: 20130305
  Receipt Date: 20130521
  Transmission Date: 20140414
  Serious: Yes (Life-Threatening, Hospitalization, Disabling)
  Sender: FDA-Public Use
  Company Number: DE-BRISTOL-MYERS SQUIBB COMPANY-17444050

PATIENT
  Age: 71 Year
  Sex: Male
  Weight: 76 kg

DRUGS (17)
  1. ALD518 [Suspect]
     Indication: STOMATITIS
     Dosage: 09OCT12,30OCT12
     Route: 042
     Dates: start: 20121009, end: 20121030
  2. CISPLATIN [Suspect]
     Indication: HEAD AND NECK CANCER
     Dosage: 11 OCT 2012?07 NOV 2012
     Route: 042
     Dates: start: 20121011, end: 20121107
  3. PLACEBO [Suspect]
     Indication: STOMATITIS
     Route: 042
     Dates: start: 20121009, end: 20121030
  4. OMEPRAZOLE [Concomitant]
     Indication: PROPHYLAXIS
     Route: 048
     Dates: start: 201209
  5. PANTHENOL [Concomitant]
     Indication: MUCOSAL INFLAMMATION
     Route: 061
     Dates: start: 20121221
  6. MAALOXAN [Concomitant]
     Indication: MUCOSAL INFLAMMATION
     Route: 062
     Dates: start: 20121221
  7. LIDOCAINE HCL [Concomitant]
     Indication: MUCOSAL INFLAMMATION
     Route: 062
     Dates: start: 20121221
  8. ESOMEPRAZOLE [Concomitant]
     Indication: PROPHYLAXIS AGAINST GASTROINTESTINAL ULCER
     Route: 048
     Dates: start: 20121031
  9. ASPIRIN [Concomitant]
     Indication: CORONARY ARTERY DISEASE
     Route: 048
     Dates: start: 2000
  10. CARVEDILOL [Concomitant]
     Indication: CORONARY ARTERY DISEASE
     Route: 048
     Dates: start: 2000
  11. HYDROCHLOROTHIAZIDE [Concomitant]
     Indication: CORONARY ARTERY DISEASE
     Route: 048
     Dates: start: 2000
  12. FINASTERIDE [Concomitant]
     Indication: BENIGN PROSTATIC HYPERPLASIA
     Route: 048
     Dates: start: 2005
  13. POTASSIUM IODIDE [Concomitant]
     Indication: GOITRE
     Route: 048
     Dates: start: 2003
  14. NYSTATIN [Concomitant]
     Indication: ORAL CANDIDIASIS
     Dosage: 1DF:1 SACHET
     Route: 048
     Dates: start: 20121102
  15. PENTAERYTHRITOL TETRANITRATE [Concomitant]
     Indication: CORONARY ARTERY DISEASE
     Route: 048
     Dates: start: 20121117
  16. PRAVASTATINE [Concomitant]
     Indication: HYPERLIPIDAEMIA
     Route: 048
     Dates: start: 2008
  17. AMLODIPINE [Concomitant]
     Indication: HYPERTENSION
     Route: 048
     Dates: start: 20121115

REACTIONS (1)
  - Tracheal fistula [Recovered/Resolved]
